FAERS Safety Report 8245636 (Version 4)
Quarter: 2014Q2

REPORT INFORMATION
  Report Type: Spontaneous
  Country: US (occurrence: US)
  Receive Date: 20111115
  Receipt Date: 20140619
  Transmission Date: 20141212
  Serious: Yes (Hospitalization)
  Sender: FDA-Public Use
  Company Number: US-GLAXOSMITHKLINE-A0780872A

PATIENT
  Sex: Male
  Weight: 87.7 kg

DRUGS (1)
  1. AVANDIA [Suspect]
     Indication: DIABETES MELLITUS
     Dosage: 8MG PER DAY
     Route: 048
     Dates: start: 1999, end: 20070418

REACTIONS (4)
  - Myocardial infarction [Unknown]
  - Cardiac failure [Unknown]
  - Cardiac disorder [Unknown]
  - Cardiomyopathy [Unknown]
